FAERS Safety Report 5924502-1 (Version None)
Quarter: 2008Q4

REPORT INFORMATION
  Report Type: 
  Country: None (occurrence: None)
  Receive Date: 20081015
  Receipt Date: 20080926
  Transmission Date: 20090506
  Serious: Yes (Hospitalization)
  Sender: FDA-Public Use
  Company Number: 2008PL000134

PATIENT
  Age: 45 Year
  Sex: Male

DRUGS (1)
  1. AZATHIOPRINE [Suspect]
     Indication: CROHN'S DISEASE
     Dosage: PO
     Route: 048

REACTIONS (10)
  - GASTRIC VARICES [None]
  - HAEMATEMESIS [None]
  - HEPATITIS [None]
  - HEPATOTOXICITY [None]
  - HYPOCHROMIC ANAEMIA [None]
  - MELAENA [None]
  - NODULAR REGENERATIVE HYPERPLASIA [None]
  - PORTAL HYPERTENSION [None]
  - THROMBOCYTOPENIA [None]
  - VARICES OESOPHAGEAL [None]
